FAERS Safety Report 4509247-7 (Version None)
Quarter: 2004Q4

REPORT INFORMATION
  Report Type: 
  Country: None (occurrence: None)
  Receive Date: 20041123
  Receipt Date: 20041119
  Transmission Date: 20050328
  Serious: Yes (Life-Threatening, Hospitalization)
  Sender: FDA-Public Use
  Company Number: FR-MERCK-0411FRA00071

PATIENT
  Age: 30 Year
  Sex: Male

DRUGS (6)
  1. VIOXX [Suspect]
     Indication: INTERVERTEBRAL DISC PROTRUSION
     Route: 048
     Dates: start: 20040920, end: 20041019
  2. TRAMADOL HYDROCHLORIDE [Concomitant]
     Indication: INTERVERTEBRAL DISC PROTRUSION
     Route: 048
     Dates: start: 20040830
  3. KETOPROFEN [Concomitant]
     Indication: INTERVERTEBRAL DISC PROTRUSION
     Route: 048
     Dates: start: 20041019
  4. KETOPROFEN [Concomitant]
     Route: 048
     Dates: start: 20040811, end: 20040920
  5. TETRAZEPAM [Concomitant]
     Indication: INTERVERTEBRAL DISC PROTRUSION
     Route: 048
     Dates: start: 20040830
  6. LANSOPRAZOLE [Concomitant]
     Indication: PROPHYLAXIS AGAINST GASTROINTESTINAL ULCER
     Route: 065
     Dates: start: 20040830

REACTIONS (2)
  - LEUKOPENIA [None]
  - NEUTROPENIA [None]
